FAERS Safety Report 9110004 (Version 2)
Quarter: 2013Q1

REPORT INFORMATION
  Report Type: Spontaneous
  Country: GB (occurrence: GB)
  Receive Date: 20130222
  Receipt Date: 20130226
  Transmission Date: 20140127
  Serious: Yes (Other)
  Sender: FDA-Public Use
  Company Number: GB-ABBOTT-12P-167-1010534-00

PATIENT
  Age: 43 Year
  Sex: Female

DRUGS (6)
  1. HUMIRA [Suspect]
     Indication: CROHN^S DISEASE
     Dosage: LOADING DOSE
     Route: 058
     Dates: start: 201211
  2. BUDESONIDE [Concomitant]
     Indication: CROHN^S DISEASE
     Dosage: 6
     Route: 048
     Dates: start: 20120816
  3. ADCAL [Concomitant]
     Indication: MINERAL SUPPLEMENTATION
     Dosage: 2
     Route: 048
     Dates: start: 20120816
  4. ADCAL [Concomitant]
     Indication: STEROID THERAPY
  5. METOCLOPRAMIDE [Concomitant]
     Indication: NAUSEA
     Dosage: 10
     Route: 048
  6. CHLOROPHENAMINE [Concomitant]
     Indication: PREMEDICATION
     Route: 048
     Dates: start: 20121122

REACTIONS (5)
  - Frequent bowel movements [Recovering/Resolving]
  - Abdominal pain upper [Recovering/Resolving]
  - Abdominal pain upper [Recovering/Resolving]
  - Asthenia [Recovering/Resolving]
  - Dyspnoea [Recovering/Resolving]
